FAERS Safety Report 14579249 (Version 1)
Quarter: 2018Q1

REPORT INFORMATION
  Report Type: Spontaneous
  Country: DE (occurrence: DE)
  Receive Date: 20180227
  Receipt Date: 20180227
  Transmission Date: 20180509
  Serious: Yes (Other)
  Sender: FDA-Public Use
  Company Number: DE-OTSUKA-DJ201302902

PATIENT

DRUGS (2)
  1. ZELDOX [Concomitant]
     Active Substance: ZIPRASIDONE
     Route: 065
  2. ABILIFY [Suspect]
     Active Substance: ARIPIPRAZOLE
     Indication: PSYCHOTIC DISORDER
     Route: 065

REACTIONS (1)
  - Factor V Leiden mutation [Unknown]
